FAERS Safety Report 6277832-0 (Version None)
Quarter: 2009Q3

REPORT INFORMATION
  Report Type: 
  Country: None (occurrence: None)
  Receive Date: 20090717
  Receipt Date: 20090717
  Transmission Date: 20100115
  Serious: Yes (Disabling, Other)
  Sender: FDA-Public Use
  Company Number: None

PATIENT
  Age: 23 Year
  Sex: Female
  Weight: 90.7194 kg

DRUGS (4)
  1. TOPAMAX [Suspect]
     Indication: MIGRAINE
     Dosage: 1 EVERY NIGHT PO
     Route: 048
     Dates: start: 20090705, end: 20090714
  2. COMBIGON [Concomitant]
  3. LUMIGAN [Concomitant]
  4. PREDNISOLONE SODIUM [Concomitant]

REACTIONS (3)
  - ANGLE CLOSURE GLAUCOMA [None]
  - BLINDNESS [None]
  - VISION BLURRED [None]
